FAERS Safety Report 7044582-2 (Version None)
Quarter: 2010Q4

REPORT INFORMATION
  Report Type: 
  Country: None (occurrence: None)
  Receive Date: 20101014
  Receipt Date: 20101005
  Transmission Date: 20110411
  Serious: Yes (Other)
  Sender: FDA-Public Use
  Company Number: US-SANOFI-AVENTIS-2010SA060675

PATIENT
  Age: 35 Year
  Sex: Male

DRUGS (2)
  1. PRIMAQUINE [Suspect]
     Indication: MALARIA PROPHYLAXIS
     Route: 048
  2. DOXYCYCLINE [Concomitant]
     Indication: MALARIA PROPHYLAXIS
     Route: 048

REACTIONS (4)
  - NAUSEA [None]
  - PHOTOPHOBIA [None]
  - RETINAL VEIN OCCLUSION [None]
  - VISION BLURRED [None]
